FAERS Safety Report 8291506-6 (Version None)
Quarter: 2012Q2

REPORT INFORMATION
  Report Type: 
  Country: None (occurrence: None)
  Receive Date: 20120417
  Receipt Date: 20120413
  Transmission Date: 20120825
  Serious: No
  Sender: FDA-Public Use
  Company Number: US-PFIZER INC-2012092778

PATIENT
  Sex: Male
  Weight: 65.76 kg

DRUGS (6)
  1. CLONAZEPAM [Concomitant]
     Indication: PARKINSON'S DISEASE
     Dosage: 5 MG, DAILY
  2. AZILECT [Concomitant]
     Indication: PARKINSON'S DISEASE
     Dosage: 1 MG, DAILY
     Route: 048
  3. VIAGRA [Suspect]
     Indication: SEXUAL DYSFUNCTION
     Dosage: 100 MG, WEEKLY
     Route: 048
     Dates: start: 20110101
  4. SINEMET [Concomitant]
     Indication: PARKINSON'S DISEASE
     Dosage: EVERY THREE HOURS
     Route: 048
  5. COMTAN [Concomitant]
     Indication: PARKINSON'S DISEASE
     Dosage: 200 MG, EVERY THREE HOURS
     Route: 048
  6. MIRAPEX [Concomitant]
     Indication: PARKINSON'S DISEASE
     Dosage: UNK, DAILY
     Route: 048

REACTIONS (2)
  - EJACULATION DISORDER [None]
  - PENIS DISORDER [None]
